FAERS Safety Report 21318458 (Version 1)
Quarter: 2022Q3

REPORT INFORMATION
  Report Type: Spontaneous
  Country: US (occurrence: US)
  Receive Date: 20220911
  Receipt Date: 20220911
  Transmission Date: 20221026
  Serious: No
  Sender: FDA-Public Use
  Company Number: US-SA-2022SA356635

PATIENT
  Age: 84 Year
  Sex: Female

DRUGS (19)
  1. DUPIXENT [Suspect]
     Active Substance: DUPILUMAB
     Indication: Dermatitis atopic
     Dosage: 300 MG, QOW
     Route: 058
     Dates: start: 20200323, end: 20200820
  2. DUPIXENT [Suspect]
     Active Substance: DUPILUMAB
     Indication: Pemphigoid
     Dosage: 300 MG, Q3W
     Route: 058
     Dates: start: 20200820, end: 20210330
  3. DUPIXENT [Suspect]
     Active Substance: DUPILUMAB
     Dosage: 300 MG, Q4W
     Route: 058
     Dates: start: 20210330
  4. DUPIXENT [Suspect]
     Active Substance: DUPILUMAB
     Dosage: 300 MG, QOW
     Route: 058
     Dates: start: 20211124
  5. CENTRUM JR [MINERALS NOS;VITAMINS NOS] [Concomitant]
  6. LASIX [Concomitant]
     Active Substance: FUROSEMIDE
  7. LISINOPRIL [Concomitant]
     Active Substance: LISINOPRIL
  8. PEPCID [Concomitant]
     Active Substance: FAMOTIDINE
  9. MIRALAX [Concomitant]
     Active Substance: POLYETHYLENE GLYCOL 3350
  10. DIGOXIN [Concomitant]
     Active Substance: DIGOXIN
  11. FAMOTIDINE [Concomitant]
     Active Substance: FAMOTIDINE
  12. CALCIUM [Concomitant]
     Active Substance: CALCIUM
  13. PREDNISOLONE [Concomitant]
     Active Substance: PREDNISOLONE
     Indication: Blood pressure abnormal
     Route: 048
  14. WARFARIN [Concomitant]
     Active Substance: WARFARIN
  15. ASCORBIC ACID\TOCOPHEROL [Concomitant]
     Active Substance: ASCORBIC ACID\TOCOPHEROL
  16. VITAMIN D NOS [Concomitant]
     Active Substance: VITAMIN D NOS
  17. TRIAMCINOLONE [Concomitant]
     Active Substance: TRIAMCINOLONE
     Indication: Pemphigoid
     Dosage: UNK
     Route: 061
     Dates: start: 20200401
  18. METOPROLOL [Concomitant]
     Active Substance: METOPROLOL
  19. GLIMEPIRIDE [Concomitant]
     Active Substance: GLIMEPIRIDE

REACTIONS (4)
  - Dyspnoea [Unknown]
  - Urinary tract infection [Unknown]
  - Product use in unapproved indication [Unknown]
  - Product use issue [Unknown]

NARRATIVE: CASE EVENT DATE: 20200323
